FAERS Safety Report 23546949 (Version 2)
Quarter: 2024Q2

REPORT INFORMATION
  Report Type: Spontaneous
  Country: US (occurrence: US)
  Receive Date: 20240221
  Receipt Date: 20240409
  Transmission Date: 20240716
  Serious: Yes (Other)
  Sender: FDA-Public Use
  Company Number: US-SA-SAC20240220000147

PATIENT
  Age: 49 Year
  Sex: Female
  Weight: 64.4 kg

DRUGS (5)
  1. DUPIXENT [Suspect]
     Active Substance: DUPILUMAB
     Indication: Dermatitis atopic
     Dosage: 300 MG, QOW
     Route: 058
     Dates: start: 2023
  2. MONTELUKAST SODIUM [Concomitant]
     Active Substance: MONTELUKAST SODIUM
     Dosage: UNK
  3. ZYRTEC [Concomitant]
     Active Substance: CETIRIZINE HYDROCHLORIDE
     Dosage: UNK
  4. HYOSCYAMINE SULFATE [Concomitant]
     Active Substance: HYOSCYAMINE SULFATE
     Dosage: UNK
  5. ESTROGENS\METHYLTESTOSTERONE [Concomitant]
     Active Substance: ESTROGENS\METHYLTESTOSTERONE
     Dosage: UNK

REACTIONS (12)
  - Pneumonia [Unknown]
  - Craniofacial fracture [Unknown]
  - Feeling abnormal [Unknown]
  - Pyrexia [Unknown]
  - Chest discomfort [Unknown]
  - Feeling hot [Unknown]
  - COVID-19 [Unknown]
  - Dry skin [Unknown]
  - Rash pruritic [Unknown]
  - Skin burning sensation [Unknown]
  - Swelling of eyelid [Unknown]
  - Erythema [Unknown]

NARRATIVE: CASE EVENT DATE: 20240101
